FAERS Safety Report 6649215-2 (Version None)
Quarter: 2010Q1

REPORT INFORMATION
  Report Type: 
  Country: None (occurrence: None)
  Receive Date: 20100319
  Receipt Date: 20100303
  Transmission Date: 20100710
  Serious: Yes (Congenital Anomaly, Other)
  Sender: FDA-Public Use
  Company Number: 2010-00309

PATIENT
  Sex: Male
  Weight: 1.17 kg

DRUGS (4)
  1. LISINOPRIL [Suspect]
     Indication: HYPERTENSION
     Dosage: TRANSPLACENTAL
     Route: 064
  2. BENDROFLUAZIDE [Suspect]
     Indication: HYPERTENSION
     Dosage: TRANSPLACENTAL
     Route: 064
  3. METHYLDOPA [Concomitant]
  4. THYROXINE [Concomitant]

REACTIONS (7)
  - BLOOD CREATININE INCREASED [None]
  - FEEDING DISORDER NEONATAL [None]
  - FOETAL GROWTH RETARDATION [None]
  - MATERNAL DRUGS AFFECTING FOETUS [None]
  - NEONATAL RESPIRATORY DISTRESS SYNDROME [None]
  - NEPHROLITHIASIS [None]
  - PREMATURE BABY [None]
